FAERS Safety Report 25273697 (Version 2)
Quarter: 2025Q2

REPORT INFORMATION
  Report Type: Report from Study
  Country: US (occurrence: US)
  Receive Date: 20250506
  Receipt Date: 20250507
  Transmission Date: 20250717
  Serious: Yes (Other)
  Sender: UCB
  Company Number: US-UCBSA-2025025739

PATIENT
  Age: 46 Year
  Sex: Female

DRUGS (1)
  1. LACOSAMIDE [Suspect]
     Active Substance: LACOSAMIDE
     Indication: Seizure
     Dosage: 250 MILLIGRAM, 2X/DAY (BID)

REACTIONS (2)
  - Generalised tonic-clonic seizure [Unknown]
  - Overdose [Unknown]

NARRATIVE: CASE EVENT DATE: 20250407
